FAERS Safety Report 23610896 (Version 1)
Quarter: 2024Q1

REPORT INFORMATION
  Report Type: Spontaneous
  Country: CN (occurrence: CN)
  Receive Date: 20240308
  Receipt Date: 20240308
  Transmission Date: 20240409
  Serious: Yes (Hospitalization)
  Sender: FDA-Public Use
  Company Number: CN-PFIZER INC-PV202400031903

PATIENT
  Age: 73 Year
  Sex: Female
  Weight: 60 kg

DRUGS (3)
  1. EPIRUBICIN HYDROCHLORIDE [Suspect]
     Active Substance: EPIRUBICIN HYDROCHLORIDE
     Indication: Diffuse large B-cell lymphoma
     Dosage: 80 MG, ONCE EVERY 21 DAYS
     Route: 041
     Dates: start: 20240228, end: 20240228
  2. RITUXIMAB [Suspect]
     Active Substance: RITUXIMAB
     Indication: Diffuse large B-cell lymphoma
     Dosage: 500 MG, ONCE EVERY 21 DAYS
     Route: 041
     Dates: start: 20240227, end: 20240227
  3. CYCLOPHOSPHAMIDE [Suspect]
     Active Substance: CYCLOPHOSPHAMIDE
     Indication: Diffuse large B-cell lymphoma
     Dosage: 1 G, ONCE EVERY 21 DAYS
     Route: 041
     Dates: start: 20240228, end: 20240228

REACTIONS (1)
  - Eosinophil count decreased [Unknown]

NARRATIVE: CASE EVENT DATE: 20240304
